FAERS Safety Report 22218459 (Version 2)
Quarter: 2023Q2

REPORT INFORMATION
  Report Type: Report from Study
  Country: US (occurrence: US)
  Receive Date: 20230417
  Receipt Date: 20230509
  Transmission Date: 20230721
  Serious: Yes (Hospitalization)
  Sender: FDA-Public Use
  Company Number: US-PFIZER INC-PV202300067098

PATIENT
  Age: 44 Year
  Sex: Male
  Weight: 93 kg

DRUGS (12)
  1. MEDROL [Suspect]
     Active Substance: METHYLPREDNISOLONE
     Indication: Erythema
     Dosage: UNK
     Dates: start: 20230324
  2. MEDROL [Suspect]
     Active Substance: METHYLPREDNISOLONE
     Indication: Scratch
  3. MEDROL [Suspect]
     Active Substance: METHYLPREDNISOLONE
     Indication: Pharyngeal erythema
  4. MEDROL [Suspect]
     Active Substance: METHYLPREDNISOLONE
     Indication: Throat irritation
  5. KEVEYIS [Suspect]
     Active Substance: DICHLORPHENAMIDE
     Indication: Paralysis
     Dosage: 50 MG, 1X/DAY
     Route: 048
     Dates: start: 20230112, end: 2023
  6. KEVEYIS [Suspect]
     Active Substance: DICHLORPHENAMIDE
     Dosage: 50 MG, 2X/DAY
     Route: 048
     Dates: start: 2023
  7. KEVEYIS [Suspect]
     Active Substance: DICHLORPHENAMIDE
     Dosage: 50 MG, 1X/DAY
     Dates: start: 20230403
  8. POTASSIUM [Suspect]
     Active Substance: POTASSIUM
     Dosage: UNK
  9. VITAMIN B [Concomitant]
     Active Substance: VITAMIN B
     Dosage: UNK
  10. PROTONIX [Concomitant]
     Active Substance: PANTOPRAZOLE SODIUM
     Dosage: 40 MG, 2X/DAY
  11. SPIRONOLACTONE [Concomitant]
     Active Substance: SPIRONOLACTONE
     Dosage: 50 MG, 1X/DAY
  12. MAGNESIUM CITRATE [Concomitant]
     Active Substance: MAGNESIUM CITRATE
     Dosage: 400 MG, ALTERNATE DAY

REACTIONS (28)
  - Throat tightness [Unknown]
  - Anxiety [Unknown]
  - Blood pressure increased [Unknown]
  - White blood cell count increased [Unknown]
  - Dysphagia [Unknown]
  - Dyspnoea [Unknown]
  - Decreased appetite [Unknown]
  - Feeling abnormal [Recovering/Resolving]
  - Pharyngeal erythema [Unknown]
  - Throat irritation [Unknown]
  - Hyperhidrosis [Unknown]
  - Nervousness [Unknown]
  - Diaphragmatic disorder [Unknown]
  - Laryngeal disorder [Unknown]
  - Muscle tightness [Unknown]
  - Movement disorder [Unknown]
  - Dysphonia [Unknown]
  - Sensation of foreign body [Unknown]
  - Blood potassium increased [Unknown]
  - Paraesthesia [Unknown]
  - Confusional state [Unknown]
  - Taste disorder [Unknown]
  - Dizziness [Unknown]
  - Paralysis [Unknown]
  - Paraesthesia [Recovering/Resolving]
  - Vertigo [Unknown]
  - Oropharyngeal pain [Recovered/Resolved]
  - Paraesthesia [Unknown]

NARRATIVE: CASE EVENT DATE: 20230101
